FAERS Safety Report 5685045-6 (Version None)
Quarter: 2008Q1

REPORT INFORMATION
  Report Type: 
  Country: None (occurrence: None)
  Receive Date: 20080328
  Receipt Date: 19981208
  Transmission Date: 20080703
  Serious: Yes (Death, Other)
  Sender: FDA-Public Use
  Company Number: US-ROCHE-109810

PATIENT
  Age: 73 Year
  Sex: Female
  Weight: 68 kg

DRUGS (3)
  1. XELODA [Suspect]
     Indication: BREAST CANCER
     Route: 048
     Dates: start: 19981114, end: 19981120
  2. XELODA [Suspect]
     Route: 048
     Dates: start: 19981121
  3. VERAPAMIL [Concomitant]
     Indication: HYPERTENSION

REACTIONS (6)
  - CHAPPED LIPS [None]
  - DEATH [None]
  - DEHYDRATION [None]
  - DIARRHOEA [None]
  - LIP HAEMORRHAGE [None]
  - NAUSEA [None]
